FAERS Safety Report 24458831 (Version 1)
Quarter: 2024Q4

REPORT INFORMATION
  Report Type: Report from Study
  Country: US (occurrence: US)
  Receive Date: 20241018
  Receipt Date: 20241018
  Transmission Date: 20250114
  Serious: No
  Sender: ROCHE
  Company Number: US-ROCHE-3526252

PATIENT
  Age: 19 Year
  Sex: Male

DRUGS (3)
  1. RITUXAN [Suspect]
     Active Substance: RITUXIMAB
     Indication: Acute lymphocytic leukaemia
     Dosage: DATE OF SERVICE: 22/FEB/2022 AND 29/FEB/2024.
     Route: 065
  2. ACYCLOVIR [Concomitant]
     Active Substance: ACYCLOVIR
  3. NPH INSULIN [Concomitant]
     Active Substance: INSULIN BEEF

REACTIONS (2)
  - Off label use [Unknown]
  - No adverse event [Unknown]
